FAERS Safety Report 15326847 (Version 2)
Quarter: 2018Q4

REPORT INFORMATION
  Report Type: Spontaneous
  Country: US (occurrence: US)
  Receive Date: 20180828
  Receipt Date: 20181003
  Transmission Date: 20190204
  Serious: Yes (Hospitalization, Other)
  Sender: FDA-Public Use
  Company Number: US-AMGEN-USASP2018116664

PATIENT
  Age: 71 Year
  Sex: Female
  Weight: 61.22 kg

DRUGS (5)
  1. PROLIA [Suspect]
     Active Substance: DENOSUMAB
     Dosage: UNK
     Route: 058
     Dates: start: 20180712
  2. ATELVIA [Concomitant]
     Active Substance: RISEDRONATE SODIUM
     Indication: OSTEOPOROSIS
     Dosage: 35 MG, QWK
     Dates: start: 20171114, end: 20180105
  3. FORTEO [Concomitant]
     Active Substance: TERIPARATIDE
     Indication: OSTEOPOROSIS
     Dosage: 20 MG, QD
     Route: 065
     Dates: start: 20180625
  4. PROLIA [Suspect]
     Active Substance: DENOSUMAB
     Indication: OSTEOPOROSIS
     Dosage: 60 MG, Q6MO
     Route: 058
     Dates: start: 20160203
  5. PROLIA [Suspect]
     Active Substance: DENOSUMAB
     Dosage: UNK
     Route: 058
     Dates: start: 20160913

REACTIONS (6)
  - Spinal fracture [Unknown]
  - Guillain-Barre syndrome [Recovering/Resolving]
  - Diarrhoea [Unknown]
  - Herpes zoster [Unknown]
  - Alopecia [Unknown]
  - Myelitis transverse [Unknown]

NARRATIVE: CASE EVENT DATE: 201711
